FAERS Safety Report 7433312-8 (Version None)
Quarter: 2011Q2

REPORT INFORMATION
  Report Type: 
  Country: None (occurrence: None)
  Receive Date: 20110422
  Receipt Date: 20110412
  Transmission Date: 20111010
  Serious: Yes (Other)
  Sender: FDA-Public Use
  Company Number: US-CEPHALON-2011001831

PATIENT
  Sex: Female
  Weight: 81 kg

DRUGS (14)
  1. PREVACID [Concomitant]
     Dates: start: 20060101
  2. FOLIC ACID [Concomitant]
     Dates: start: 20090728
  3. RECLAST [Concomitant]
     Dates: start: 20060101
  4. PLAVIX [Concomitant]
     Dates: start: 20090303
  5. LIPITOR [Concomitant]
     Dates: start: 20081101
  6. RESTASIS [Concomitant]
     Dates: start: 20091002
  7. PREDNISONE [Concomitant]
     Dates: start: 20091106
  8. PROVIGIL [Suspect]
     Indication: SLEEP APNOEA SYNDROME
     Route: 048
     Dates: end: 20100101
  9. METHOTREXATE [Concomitant]
     Dates: start: 20090101
  10. NUVIGIL [Suspect]
     Indication: SLEEP APNOEA SYNDROME
     Route: 048
  11. LEVOXYL [Concomitant]
     Dates: start: 20060101
  12. METOPROLOL [Concomitant]
     Dates: start: 20080101
  13. AMLODIPINE [Concomitant]
     Dates: start: 20101101
  14. ASPIRIN [Concomitant]
     Dates: start: 20081101

REACTIONS (6)
  - NEUROPATHY PERIPHERAL [None]
  - GASTROOESOPHAGEAL REFLUX DISEASE [None]
  - STOMATITIS [None]
  - TEMPORAL ARTERITIS [None]
  - BARRETT'S OESOPHAGUS [None]
  - TRANSIENT ISCHAEMIC ATTACK [None]
